FAERS Safety Report 4574018-2 (Version None)
Quarter: 2005Q1

REPORT INFORMATION
  Report Type: 
  Country: None (occurrence: None)
  Receive Date: 20050204
  Receipt Date: 20050125
  Transmission Date: 20050727
  Serious: Yes (Disabling, Other)
  Sender: FDA-Public Use
  Company Number: 2005008735

PATIENT
  Age: 82 Year
  Sex: Female

DRUGS (14)
  1. CELEBREX [Suspect]
     Indication: ARTHRITIS
     Dosage: 400 MG (200 MG, 2 IN 1 D), ORAL
     Route: 048
     Dates: start: 20040101
  2. CELEBREX [Suspect]
     Indication: FIBROMYALGIA
     Dosage: 400 MG (200 MG, 2 IN 1 D), ORAL
     Route: 048
     Dates: start: 20040101
  3. CELEBREX [Suspect]
     Indication: NEUROPATHY
     Dosage: 400 MG (200 MG, 2 IN 1 D), ORAL
     Route: 048
     Dates: start: 20040101
  4. CELEBREX [Suspect]
     Indication: SPINAL COLUMN STENOSIS
     Dosage: 400 MG (200 MG, 2 IN 1 D), ORAL
     Route: 048
     Dates: start: 20040101
  5. BEXTRA [Suspect]
     Indication: ARTHRITIS
     Dosage: ORAL
     Route: 048
     Dates: start: 20040101, end: 20040101
  6. BEXTRA [Suspect]
     Indication: FIBROMYALGIA
     Dosage: ORAL
     Route: 048
     Dates: start: 20040101, end: 20040101
  7. BEXTRA [Suspect]
     Indication: NEUROPATHY
     Dosage: ORAL
     Route: 048
     Dates: start: 20040101, end: 20040101
  8. BEXTRA [Suspect]
     Indication: SPINAL COLUMN STENOSIS
     Dosage: ORAL
     Route: 048
     Dates: start: 20040101, end: 20040101
  9. KARVEA HCT (HYDROCHLOROTHIAZIDE, IRBESARTAN) [Concomitant]
  10. AMLODIPINE BESYLATE [Concomitant]
  11. POTASSIUM CHLORIDE [Concomitant]
  12. CITALOPRAM HYDROBROMIDE [Concomitant]
  13. RABEPRAZOLE SODIUM [Concomitant]
  14. ACETYLSALICYLIC ACID SRT [Concomitant]

REACTIONS (7)
  - GRAFT COMPLICATION [None]
  - IMPLANT SITE INFECTION [None]
  - INADEQUATE ANALGESIA [None]
  - LEG AMPUTATION [None]
  - PAIN [None]
  - POOR PERIPHERAL CIRCULATION [None]
  - WEIGHT INCREASED [None]
